FAERS Safety Report 13355476 (Version 1)
Quarter: 2017Q1

REPORT INFORMATION
  Report Type: Spontaneous
  Country: US (occurrence: US)
  Receive Date: 20170321
  Receipt Date: 20170321
  Transmission Date: 20170429
  Serious: No
  Sender: FDA-Public Use
  Company Number: US-009507513-1703USA008849

PATIENT
  Age: 25 Year
  Sex: Female
  Weight: 97.51 kg

DRUGS (1)
  1. NUVARING [Suspect]
     Active Substance: ETHINYL ESTRADIOL\ETONOGESTREL
     Indication: CONTRACEPTION
     Dosage: 1 RING, QM (THREE WEEKS IN, ONE WEEK OUT)
     Route: 067
     Dates: start: 20170218

REACTIONS (1)
  - Abnormal withdrawal bleeding [Unknown]

NARRATIVE: CASE EVENT DATE: 201703
